FAERS Safety Report 4961366-7 (Version None)
Quarter: 2006Q1

REPORT INFORMATION
  Report Type: 
  Country: None (occurrence: None)
  Receive Date: 20060201
  Receipt Date: 20051116
  Transmission Date: 20060701
  Serious: No
  Sender: FDA-Public Use
  Company Number: 2005PV004822

PATIENT
  Age: 56 Year
  Sex: Male
  Weight: 111.1313 kg

DRUGS (12)
  1. BYETTA [Suspect]
     Indication: DIABETES MELLITUS NON-INSULIN-DEPENDENT
     Dosage: 5 MCG;BID;SC
     Route: 058
     Dates: start: 20051112, end: 20051115
  2. ASPIRIN [Concomitant]
  3. ACTOS [Concomitant]
  4. METFORMIN [Concomitant]
  5. LANTUS [Concomitant]
  6. POTASSIUM [Concomitant]
  7. ATENOLOL [Concomitant]
  8. HYDROCHLOROTHIAZIDE [Concomitant]
  9. LIPITOR [Concomitant]
  10. NORVASC [Concomitant]
  11. NIASPAN [Concomitant]
  12. ENALAPRIL MALEATE [Concomitant]

REACTIONS (2)
  - DIARRHOEA [None]
  - HAEMATOCHEZIA [None]
